FAERS Safety Report 9602586 (Version 1)
Quarter: 2013Q4

REPORT INFORMATION
  Report Type: Spontaneous
  Country: BR (occurrence: BR)
  Receive Date: 20131007
  Receipt Date: 20131007
  Transmission Date: 20140711
  Serious: Yes (Other)
  Sender: FDA-Public Use
  Company Number: BR-PFIZER INC-2013283585

PATIENT
  Sex: Female

DRUGS (1)
  1. SUTENT [Suspect]
     Indication: RENAL CANCER
     Dosage: 50 MG (ONE CAPSULE), 1X/DAY
     Route: 048
     Dates: start: 20130920

REACTIONS (6)
  - Leg amputation [Unknown]
  - Wound [Unknown]
  - Wound secretion [Unknown]
  - Blister [Unknown]
  - Oral discharge [Unknown]
  - Fatigue [Unknown]
